FAERS Safety Report 5527456-5 (Version None)
Quarter: 2007Q4

REPORT INFORMATION
  Report Type: 
  Country: None (occurrence: None)
  Receive Date: 20071123
  Receipt Date: 20071115
  Transmission Date: 20080405
  Serious: Yes (Disabling)
  Sender: FDA-Public Use
  Company Number: 2007SP015148

PATIENT
  Age: 57 Year
  Sex: Male

DRUGS (10)
  1. PEG-INTRON [Suspect]
     Indication: HEPATITIS C
     Dosage: 120 MCG; QW; SC
     Route: 058
     Dates: start: 20070313, end: 20070626
  2. REBETOL [Suspect]
     Indication: HEPATITIS C
     Dosage: 1400 MG; QD; PO; 1000 MG; QD; PO; 800 MG; QD; PO
     Route: 048
     Dates: start: 20070313, end: 20070325
  3. REBETOL [Suspect]
     Indication: HEPATITIS C
     Dosage: 1400 MG; QD; PO; 1000 MG; QD; PO; 800 MG; QD; PO
     Route: 048
     Dates: start: 20070326, end: 20070328
  4. REBETOL [Suspect]
     Indication: HEPATITIS C
     Dosage: 1400 MG; QD; PO; 1000 MG; QD; PO; 800 MG; QD; PO
     Route: 048
     Dates: start: 20070329, end: 20070626
  5. HCV-796 [Suspect]
     Indication: HEPATITIS C
     Dosage: 500 MG; BID; PO
     Route: 048
     Dates: start: 20070313, end: 20070626
  6. VICODIN [Concomitant]
  7. FOLIC ACID [Concomitant]
  8. ADVIL LIQUI-GELS [Concomitant]
  9. ALBUEROL [Concomitant]
  10. YOUNGEVITY VITAMIN SUPPLEMENTS WITH SELENIUM [Concomitant]

REACTIONS (9)
  - ALANINE AMINOTRANSFERASE INCREASED [None]
  - ASPARTATE AMINOTRANSFERASE INCREASED [None]
  - BLOOD ALBUMIN INCREASED [None]
  - BLOOD ALKALINE PHOSPHATASE INCREASED [None]
  - FATIGUE [None]
  - JAUNDICE [None]
  - NAUSEA [None]
  - TREATMENT NONCOMPLIANCE [None]
  - VOMITING [None]
